FAERS Safety Report 8540270 (Version 2)
Quarter: 2013Q1

REPORT INFORMATION
  Report Type: Spontaneous
  Country: IT (occurrence: IT)
  Receive Date: 20120502
  Receipt Date: 20130329
  Transmission Date: 20140127
  Serious: Yes (Hospitalization)
  Sender: FDA-Public Use
  Company Number: IT-PFIZER INC-2012105599

PATIENT
  Age: 81 Year
  Sex: Male

DRUGS (1)
  1. TAZOCIN [Suspect]
     Indication: PNEUMONIA
     Dosage: 3 DF, 1X/DAY
     Dates: start: 20120422, end: 20120422

REACTIONS (2)
  - Hypotension [Recovered/Resolved]
  - Loss of consciousness [Recovered/Resolved]
